FAERS Safety Report 6062508-5 (Version None)
Quarter: 2009Q1

REPORT INFORMATION
  Report Type: 
  Country: None (occurrence: None)
  Receive Date: 20090203
  Receipt Date: 20090122
  Transmission Date: 20090719
  Serious: Yes (Disabling)
  Sender: FDA-Public Use
  Company Number: FR-WYE-H07252608

PATIENT
  Sex: Female

DRUGS (6)
  1. CORDARONE [Suspect]
     Indication: ARRHYTHMIA
     Route: 048
     Dates: start: 19980101, end: 20081125
  2. LEVOTHYROX [Concomitant]
     Route: 048
  3. TEMERIT [Concomitant]
     Indication: HYPERTENSION
     Route: 048
  4. BROMAZEPAM [Concomitant]
     Indication: INSOMNIA
     Dosage: 6 MG HS
     Route: 048
     Dates: start: 20060801
  5. SIMVASTATIN [Concomitant]
     Indication: HYPERCHOLESTEROLAEMIA
     Route: 048
  6. KARDEGIC [Concomitant]

REACTIONS (3)
  - DEMYELINATING POLYNEUROPATHY [None]
  - GAIT DISTURBANCE [None]
  - MUSCULAR WEAKNESS [None]
